FAERS Safety Report 23439384 (Version 3)
Quarter: 2024Q1

REPORT INFORMATION
  Report Type: Spontaneous
  Country: BE (occurrence: BE)
  Receive Date: 20240124
  Receipt Date: 20240229
  Transmission Date: 20240410
  Serious: Yes (Death, Hospitalization)
  Sender: FDA-Public Use
  Company Number: BE-ELI_LILLY_AND_COMPANY-BE202401007541

PATIENT
  Age: 90 Year
  Sex: Female

DRUGS (1)
  1. HUMULIN 70/30 [Suspect]
     Active Substance: INSULIN HUMAN
     Indication: Product used for unknown indication
     Dosage: 20 U, UNKNOWN
     Route: 065

REACTIONS (3)
  - Fall [Unknown]
  - Fracture [Unknown]
  - Death [Fatal]
